FAERS Safety Report 14964239 (Version 7)
Quarter: 2021Q3

REPORT INFORMATION
  Report Type: Spontaneous
  Country: DE (occurrence: DE)
  Receive Date: 20180601
  Receipt Date: 20210922
  Transmission Date: 20211014
  Serious: Yes (Hospitalization)
  Sender: FDA-Public Use
  Company Number: PHHY2017DE203575

PATIENT
  Age: 74 Year
  Sex: Male

DRUGS (12)
  1. DEXAMETHASONE. [Suspect]
     Active Substance: DEXAMETHASONE
     Dosage: 20 MG, QW
     Route: 048
     Dates: start: 20171110, end: 20171124
  2. REVLIMID [Suspect]
     Active Substance: LENALIDOMIDE
     Dosage: 50 MG, QD
     Route: 048
     Dates: start: 20180216
  3. DEXAMETHASONE. [Suspect]
     Active Substance: DEXAMETHASONE
     Indication: PLASMA CELL MYELOMA
     Dosage: 40 MG, QW
     Route: 048
     Dates: start: 20171006, end: 20171011
  4. REVLIMID [Suspect]
     Active Substance: LENALIDOMIDE
     Dosage: 50 MG, QD
     Route: 048
     Dates: start: 20180126, end: 20180209
  5. DEXAMETHASONE. [Suspect]
     Active Substance: DEXAMETHASONE
     Dosage: 20 MG, QW
     Route: 048
     Dates: start: 20180216
  6. REVLIMID [Suspect]
     Active Substance: LENALIDOMIDE
     Dosage: 50 MG, QD
     Route: 048
     Dates: start: 20171018, end: 20171103
  7. DEXAMETHASONE. [Suspect]
     Active Substance: DEXAMETHASONE
     Dosage: 20 MG, QW
     Route: 048
     Dates: start: 20171018, end: 20171101
  8. DEXAMETHASONE. [Suspect]
     Active Substance: DEXAMETHASONE
     Dosage: 20 MG, QW
     Route: 048
     Dates: start: 20180109, end: 20180209
  9. REVLIMID [Suspect]
     Active Substance: LENALIDOMIDE
     Indication: PLASMA CELL MYELOMA
     Dosage: 50 MG, QD
     Route: 048
     Dates: start: 20171006, end: 20171011
  10. REVLIMID [Suspect]
     Active Substance: LENALIDOMIDE
     Dosage: 50 MG, QD
     Route: 048
     Dates: start: 20171208, end: 20171212
  11. DEXAMETHASONE. [Suspect]
     Active Substance: DEXAMETHASONE
     Dosage: 20 MG, QW
     Route: 048
     Dates: start: 20171208, end: 20171215
  12. REVLIMID [Suspect]
     Active Substance: LENALIDOMIDE
     Dosage: 50 MG, QD
     Route: 048
     Dates: start: 20171110, end: 20171130

REACTIONS (3)
  - Fatigue [Recovered/Resolved]
  - Rash pruritic [Recovered/Resolved]
  - Abdominal pain [Recovered/Resolved]

NARRATIVE: CASE EVENT DATE: 20171008
